FAERS Safety Report 12137340 (Version 1)
Quarter: 2016Q1

REPORT INFORMATION
  Report Type: Spontaneous
  Country: CA (occurrence: CA)
  Receive Date: 20160302
  Receipt Date: 20160302
  Transmission Date: 20160526
  Serious: Yes (Other)
  Sender: FDA-Public Use
  Company Number: CA-TEVA-639673ACC

PATIENT
  Sex: Male
  Weight: 96.7 kg

DRUGS (1)
  1. TAMSULOSIN [Suspect]
     Active Substance: TAMSULOSIN
     Indication: POLLAKIURIA
     Dosage: .4 MILLIGRAM DAILY;
     Route: 048

REACTIONS (8)
  - Male sexual dysfunction [Recovered/Resolved]
  - Drug ineffective [Recovered/Resolved]
  - Prostatism [Recovered/Resolved]
  - Quality of life decreased [Recovered/Resolved]
  - Pollakiuria [Recovered/Resolved]
  - Urinary retention [Recovered/Resolved]
  - Condition aggravated [Recovered/Resolved]
  - Product substitution issue [Recovered/Resolved]
